FAERS Safety Report 4588085-3 (Version None)
Quarter: 2005Q1

REPORT INFORMATION
  Report Type: 
  Country: None (occurrence: None)
  Receive Date: 20050216
  Receipt Date: 20050201
  Transmission Date: 20050727
  Serious: Yes (Other)
  Sender: FDA-Public Use
  Company Number: JP_050105683

PATIENT
  Age: 75 Year
  Sex: Male
  Weight: 43 kg

DRUGS (6)
  1. ONCOVIN [Suspect]
     Indication: DIFFUSE LARGE B-CELL LYMPHOMA
     Dosage: 1.97 MG OTHER
     Route: 042
     Dates: start: 20031209, end: 20040123
  2. CYCLOPHOSPHAMIDE [Concomitant]
  3. ............ [Concomitant]
  4. ADRIACIN           (DOXORUBICIN HYDROCHLORIDE) [Concomitant]
  5. DECADRON [Concomitant]
  6. RITUXIMAB [Concomitant]

REACTIONS (5)
  - ABDOMINAL DISTENSION [None]
  - CONDITION AGGRAVATED [None]
  - CONSTIPATION [None]
  - ILEUS PARALYTIC [None]
  - TUMOUR LYSIS SYNDROME [None]
